FAERS Safety Report 6615522-2 (Version None)
Quarter: 2010Q1

REPORT INFORMATION
  Report Type: 
  Country: None (occurrence: None)
  Receive Date: 20100305
  Receipt Date: 20100224
  Transmission Date: 20100710
  Serious: Yes (Life-Threatening)
  Sender: FDA-Public Use
  Company Number: US-BAYER-201012289BCC

PATIENT
  Age: 79 Year
  Sex: Female
  Weight: 73 kg

DRUGS (2)
  1. ALEVE (CAPLET) [Suspect]
     Indication: BACK PAIN
     Route: 048
     Dates: start: 20100223
  2. MOBIC [Concomitant]

REACTIONS (3)
  - ANAPHYLACTIC SHOCK [None]
  - SWOLLEN TONGUE [None]
  - THROAT TIGHTNESS [None]
